FAERS Safety Report 21633316 (Version 1)
Quarter: 2022Q4

REPORT INFORMATION
  Report Type: Spontaneous
  Country: GB (occurrence: GB)
  Receive Date: 20221123
  Receipt Date: 20221123
  Transmission Date: 20230113
  Serious: Yes (Other)
  Sender: FDA-Public Use
  Company Number: GB-MHRA-MED-202211161533265660-KJBHC

PATIENT
  Age: 28 Year
  Sex: Female
  Weight: 81 kg

DRUGS (2)
  1. FRAGMIN [Suspect]
     Active Substance: DALTEPARIN SODIUM
     Indication: Pulmonary embolism
     Dosage: ONCE A DAY AT 6PM
     Dates: start: 20220508, end: 20220816
  2. AMOXICILLIN\CLAVULANATE POTASSIUM [Suspect]
     Active Substance: AMOXICILLIN\CLAVULANATE POTASSIUM
     Indication: Mastitis
     Dosage: UNK, 3X/DAY
     Dates: start: 20220524, end: 20220530

REACTIONS (10)
  - Contraindicated product administered [Unknown]
  - Hallucination [Recovered/Resolved]
  - Arthralgia [Recovered/Resolved]
  - Headache [Recovered/Resolved]
  - Chills [Recovered/Resolved]
  - Pain [Recovered/Resolved]
  - Burning sensation [Recovered/Resolved]
  - Tremor [Recovered/Resolved]
  - Screaming [Recovered/Resolved]
  - Mastitis [Unknown]

NARRATIVE: CASE EVENT DATE: 20220101
